FAERS Safety Report 13676793 (Version 7)
Quarter: 2018Q2

REPORT INFORMATION
  Report Type: Report from Study
  Country: US (occurrence: US)
  Receive Date: 20170622
  Receipt Date: 20180426
  Transmission Date: 20180711
  Serious: No
  Sender: FDA-Public Use
  Company Number: PHHY2017US087795

PATIENT
  Age: 44 Year
  Sex: Female

DRUGS (2)
  1. GILENYA [Suspect]
     Active Substance: FINGOLIMOD HYDROCHLORIDE
     Indication: MULTIPLE SCLEROSIS
     Dosage: UNK, QD
     Route: 048
  2. TIZANIDINE. [Concomitant]
     Active Substance: TIZANIDINE
     Indication: MUSCLE SPASMS
     Dosage: UNK
     Route: 065
     Dates: start: 20170109

REACTIONS (15)
  - Transaminases increased [Not Recovered/Not Resolved]
  - Blood alkaline phosphatase increased [Unknown]
  - Micturition urgency [Not Recovered/Not Resolved]
  - Insomnia [Not Recovered/Not Resolved]
  - Tongue discomfort [Recovered/Resolved]
  - Diffuse alopecia [Not Recovered/Not Resolved]
  - Urinary incontinence [Unknown]
  - Vision blurred [Not Recovered/Not Resolved]
  - Alanine aminotransferase increased [Unknown]
  - Melanocytic naevus [Unknown]
  - Solar lentigo [Not Recovered/Not Resolved]
  - Headache [Not Recovered/Not Resolved]
  - Dyskinesia [Not Recovered/Not Resolved]
  - Tongue discolouration [Not Recovered/Not Resolved]
  - Hypoaesthesia [Not Recovered/Not Resolved]

NARRATIVE: CASE EVENT DATE: 20170109
